FAERS Safety Report 5814551-6 (Version None)
Quarter: 2008Q3

REPORT INFORMATION
  Report Type: 
  Country: None (occurrence: None)
  Receive Date: 20080718
  Receipt Date: 20070816
  Transmission Date: 20090109
  Serious: No
  Sender: FDA-Public Use
  Company Number: US-KINGPHARMUSA00001-K200701041

PATIENT

DRUGS (5)
  1. LEVOXYL [Suspect]
     Dosage: 125 MCG, QD
     Route: 048
     Dates: start: 20070801, end: 20070801
  2. NEXIUM [Concomitant]
  3. PREMARIN [Concomitant]
  4. NASACORT [Concomitant]
  5. ALLEGRA [Concomitant]

REACTIONS (2)
  - PAIN [None]
  - URTICARIA [None]
